FAERS Safety Report 5558742-0 (Version None)
Quarter: 2007Q4

REPORT INFORMATION
  Report Type: 
  Country: None (occurrence: None)
  Receive Date: 20071214
  Receipt Date: 20071205
  Transmission Date: 20080405
  Serious: Yes (Disabling)
  Sender: FDA-Public Use
  Company Number: GB-PFIZER INC-2007102961

PATIENT
  Sex: Female

DRUGS (4)
  1. LYRICA [Suspect]
     Route: 048
     Dates: start: 20070913, end: 20071104
  2. BACLOFEN [Concomitant]
  3. MISOPROSTOL [Concomitant]
  4. TRAMADOL HCL [Concomitant]

REACTIONS (5)
  - CHEST PAIN [None]
  - CONFUSIONAL STATE [None]
  - HYPOAESTHESIA ORAL [None]
  - MUSCULOSKELETAL PAIN [None]
  - PAIN IN EXTREMITY [None]
